FAERS Safety Report 12381582 (Version 3)
Quarter: 2016Q2

REPORT INFORMATION
  Report Type: Spontaneous
  Country: IT (occurrence: IT)
  Receive Date: 20160518
  Receipt Date: 20160608
  Transmission Date: 20160815
  Serious: Yes (Other)
  Sender: FDA-Public Use
  Company Number: IT-TEVA-660631ISR

PATIENT
  Age: 75 Year
  Sex: Female

DRUGS (3)
  1. CISPLATIN. [Suspect]
     Active Substance: CISPLATIN
     Indication: OVARIAN CANCER
     Dosage: 500 MG/MQ
     Dates: start: 200811
  2. EPIRUBICIN [Suspect]
     Active Substance: EPIRUBICIN
     Indication: OVARIAN CANCER
     Dosage: 60 MG/MQ
     Dates: start: 200811
  3. CYCLOPHOSPHAMIDE. [Suspect]
     Active Substance: CYCLOPHOSPHAMIDE
     Indication: OVARIAN CANCER
     Dosage: 600 MG/MQ
     Dates: start: 200811

REACTIONS (6)
  - Gastrointestinal toxicity [Recovering/Resolving]
  - Haematotoxicity [Recovering/Resolving]
  - Thrombocytopenia [Recovering/Resolving]
  - Anaemia [Recovering/Resolving]
  - Mucosal inflammation [Recovering/Resolving]
  - Leukopenia [Recovering/Resolving]

NARRATIVE: CASE EVENT DATE: 200812
